FAERS Safety Report 12329537 (Version 1)
Quarter: 2016Q2

REPORT INFORMATION
  Report Type: Report from Study
  Country: CA (occurrence: CA)
  Receive Date: 20160503
  Receipt Date: 20160503
  Transmission Date: 20160815
  Serious: Yes (Hospitalization)
  Sender: FDA-Public Use
  Company Number: CA-HLSUS-2016-CA-000064

PATIENT
  Age: 57 Year
  Sex: Male

DRUGS (1)
  1. CLOZARIL [Suspect]
     Active Substance: CLOZAPINE
     Route: 048
     Dates: start: 20160324, end: 20160424

REACTIONS (3)
  - White blood cell count decreased [Unknown]
  - Psychiatric decompensation [Unknown]
  - Neutropenia [Unknown]

NARRATIVE: CASE EVENT DATE: 20160426
